FAERS Safety Report 6973123-0 (Version None)
Quarter: 2010Q3

REPORT INFORMATION
  Report Type: 
  Country: None (occurrence: None)
  Receive Date: 20100909
  Receipt Date: 20100901
  Transmission Date: 20110219
  Serious: Yes (Other)
  Sender: FDA-Public Use
  Company Number: IL-AMGEN-KDC413348

PATIENT
  Sex: Female

DRUGS (5)
  1. DENOSUMAB [Suspect]
     Indication: METASTASES TO BONE
     Dates: start: 20090622
  2. ENALAPRIL MALEATE [Concomitant]
     Route: 048
     Dates: start: 20070601
  3. AMLODIPINE [Concomitant]
     Route: 048
     Dates: start: 20070601
  4. DOXAZOSIN MESILATE [Concomitant]
     Route: 048
     Dates: start: 20070601
  5. CALCIUM CARBONATE/VITAMIN D [Concomitant]
     Route: 048
     Dates: start: 20070819

REACTIONS (1)
  - ABSCESS JAW [None]
